FAERS Safety Report 5083197-2 (Version None)
Quarter: 2006Q3

REPORT INFORMATION
  Report Type: 
  Country: None (occurrence: None)
  Receive Date: 20060724
  Receipt Date: 20031121
  Transmission Date: 20061208
  Serious: Yes (Hospitalization)
  Sender: FDA-Public Use
  Company Number: DRON00206001375

PATIENT
  Age: 54 Year
  Sex: Female
  Weight: 118 kg

DRUGS (8)
  1. MARINOL [Suspect]
     Indication: MUSCLE SPASTICITY
     Dosage: DAILY ORAL: 2.5 TO 25 MG., 15 MG DAILY ORAL
     Route: 048
     Dates: start: 20011117, end: 20020219
  2. MARINOL [Suspect]
     Indication: MUSCLE SPASTICITY
     Dosage: DAILY ORAL: 2.5 TO 25 MG., 15 MG DAILY ORAL
     Route: 048
     Dates: start: 20020302, end: 20021115
  3. BACLOFEN [Concomitant]
     Indication: MULTIPLE SCLEROSIS
  4. GABAPENTIN [Concomitant]
  5. NITROFURANTOIN [Concomitant]
  6. PROPIVERINE [Concomitant]
  7. CARBAMAZEPINE [Concomitant]
  8. CEFA;EXON (CEFALEXIN) [Concomitant]

REACTIONS (1)
  - URINARY TRACT INFECTION [None]
